FAERS Safety Report 7179056-1 (Version None)
Quarter: 2010Q4

REPORT INFORMATION
  Report Type: 
  Country: None (occurrence: None)
  Receive Date: 20101221
  Receipt Date: 20101221
  Transmission Date: 20110411
  Serious: Yes (Life-Threatening, Hospitalization, Disabling)
  Sender: FDA-Public Use
  Company Number: PHHO2008CH12870

PATIENT
  Sex: Male
  Weight: 71 kg

DRUGS (2)
  1. ACLASTA/ZOLEDRONATE T29581+A+ [Suspect]
     Indication: OSTEOPOROSIS
     Dosage: 5 MG
     Route: 042
     Dates: start: 20080429, end: 20081103
  2. CALCIUM-D-SANDOZ [Concomitant]
     Indication: OSTEOPOROSIS

REACTIONS (8)
  - ABNORMAL BEHAVIOUR [None]
  - APHASIA [None]
  - ATRIAL FIBRILLATION [None]
  - CEREBRAL ARTERY OCCLUSION [None]
  - CEREBROVASCULAR ACCIDENT [None]
  - CONCOMITANT DISEASE PROGRESSION [None]
  - SENSORIMOTOR DISORDER [None]
  - VIITH NERVE PARALYSIS [None]
